FAERS Safety Report 18704180 (Version 1)
Quarter: 2021Q1

REPORT INFORMATION
  Report Type: Spontaneous
  Country: AU (occurrence: AU)
  Receive Date: 20210106
  Receipt Date: 20210106
  Transmission Date: 20210419
  Serious: Yes (Hospitalization, Other)
  Sender: FDA-Public Use
  Company Number: AU-SA-2020SA370354

PATIENT

DRUGS (1)
  1. ALEMTUZUMAB [Suspect]
     Active Substance: ALEMTUZUMAB
     Indication: RELAPSING-REMITTING MULTIPLE SCLEROSIS
     Dosage: UNK (TWO COURSES)

REACTIONS (8)
  - Glomerulonephritis [Recovering/Resolving]
  - Anti-glomerular basement membrane disease [Recovering/Resolving]
  - Pulmonary haemorrhage [Recovering/Resolving]
  - Renal impairment [Not Recovered/Not Resolved]
  - Vasculitis [Recovering/Resolving]
  - Malaise [Recovering/Resolving]
  - Haematuria [Recovering/Resolving]
  - Haemoptysis [Recovering/Resolving]
